FAERS Safety Report 22252451 (Version 2)
Quarter: 2023Q2

REPORT INFORMATION
  Report Type: Spontaneous
  Country: DE (occurrence: None)
  Receive Date: 20230426
  Receipt Date: 20230510
  Transmission Date: 20230721
  Serious: Yes (Other)
  Sender: FDA-Public Use
  Company Number: DE-MLMSERVICE-20230405-4208760-1

PATIENT
  Sex: Female
  Weight: 27.4 kg

DRUGS (16)
  1. METHYLPREDNISOLONE [Suspect]
     Active Substance: METHYLPREDNISOLONE
     Indication: Acute graft versus host disease in skin
     Dosage: DOSE REDUCTION
     Route: 042
  2. METHYLPREDNISOLONE [Suspect]
     Active Substance: METHYLPREDNISOLONE
     Route: 042
  3. METHYLPREDNISOLONE [Suspect]
     Active Substance: METHYLPREDNISOLONE
     Route: 042
  4. RUXOLITINIB [Concomitant]
     Active Substance: RUXOLITINIB
     Indication: Acute graft versus host disease in skin
     Dosage: UNKNOWN
     Route: 065
  5. RUXOLITINIB [Concomitant]
     Active Substance: RUXOLITINIB
     Indication: Chronic graft versus host disease
  6. OFATUMUMAB [Concomitant]
     Active Substance: OFATUMUMAB
     Indication: Acute graft versus host disease in skin
     Dosage: UNKNOWN
     Route: 065
  7. OFATUMUMAB [Concomitant]
     Active Substance: OFATUMUMAB
     Indication: Chronic graft versus host disease
  8. PENTOSTATIN [Concomitant]
     Active Substance: PENTOSTATIN
     Indication: Acute graft versus host disease in skin
     Dosage: UNKNOWN
     Route: 065
  9. PENTOSTATIN [Concomitant]
     Active Substance: PENTOSTATIN
     Indication: Chronic graft versus host disease
  10. INFLIXIMAB [Concomitant]
     Active Substance: INFLIXIMAB
     Indication: Acute graft versus host disease in skin
     Dosage: UNKNOWN
     Route: 065
  11. INFLIXIMAB [Concomitant]
     Active Substance: INFLIXIMAB
     Indication: Chronic graft versus host disease
  12. CYCLOSPORINE [Concomitant]
     Active Substance: CYCLOSPORINE
     Indication: Prophylaxis against graft versus host disease
     Dosage: UNKNOWN
     Route: 065
  13. ADALIMUMAB [Concomitant]
     Active Substance: ADALIMUMAB
     Indication: Acute graft versus host disease in skin
     Dosage: UNKNOWN
     Route: 065
  14. ADALIMUMAB [Concomitant]
     Active Substance: ADALIMUMAB
     Indication: Chronic graft versus host disease
  15. SIROLIMUS [Concomitant]
     Active Substance: SIROLIMUS
     Indication: Acute graft versus host disease in skin
     Dosage: UNKNOWN
     Route: 065
  16. SIROLIMUS [Concomitant]
     Active Substance: SIROLIMUS
     Indication: Chronic graft versus host disease

REACTIONS (1)
  - Osteonecrosis [Recovering/Resolving]
